FAERS Safety Report 9991721 (Version 3)
Quarter: 2014Q2

REPORT INFORMATION
  Report Type: Report from Study
  Country: US (occurrence: US)
  Receive Date: 20140310
  Receipt Date: 20140623
  Transmission Date: 20141212
  Serious: Yes (Hospitalization)
  Sender: FDA-Public Use
  Company Number: US-TEVA-453896USA

PATIENT
  Age: 70 Year
  Sex: Male

DRUGS (21)
  1. BENDAMUSTINE [Suspect]
     Indication: MANTLE CELL LYMPHOMA
     Route: 042
     Dates: start: 20130917
  2. BENDAMUSTINE [Suspect]
     Dosage: UNKNOWN/D
     Route: 042
     Dates: start: 20131211
  3. RITUXIMAB [Suspect]
     Indication: MANTLE CELL LYMPHOMA
     Route: 042
     Dates: start: 20130917
  4. RITUXIMAB [Suspect]
     Dosage: UNKNOWN/D
     Route: 042
     Dates: start: 20131029
  5. RITUXIMAB [Suspect]
     Dosage: UNKNOWN/D
     Route: 042
     Dates: start: 20131210
  6. RITUXIMAB [Suspect]
     Dosage: UNKNOWN/D
     Route: 042
     Dates: start: 20131012
  7. IBRUTINIB/PLACEBO [Suspect]
     Indication: MANTLE CELL LYMPHOMA
     Dosage: 140 MILLIGRAM DAILY;
     Route: 048
     Dates: start: 20130917
  8. IBRUTINIB/PLACEBO [Suspect]
     Dosage: 560 MILLIGRAM DAILY;
     Route: 048
     Dates: start: 20131210
  9. FENTANYL PATCH [Concomitant]
     Indication: PAIN
     Dosage: UG
     Dates: start: 201111
  10. NEXIUM [Concomitant]
     Indication: GASTROOESOPHAGEAL REFLUX DISEASE
     Dosage: 40 MILLIGRAM DAILY;
  11. LASIX [Concomitant]
     Indication: FLUID RETENTION
     Route: 048
     Dates: start: 2011
  12. CRESTOR [Concomitant]
     Indication: HYPERLIPIDAEMIA
     Dosage: 10 MILLIGRAM DAILY;
     Route: 048
     Dates: start: 2009
  13. ASACOL [Concomitant]
     Indication: GASTROOESOPHAGEAL REFLUX DISEASE
     Dosage: 800 MILLIGRAM DAILY;
     Route: 048
     Dates: start: 2009
  14. ALLOPURINOL [Concomitant]
     Indication: PROPHYLAXIS
     Dosage: 300 MILLIGRAM DAILY;
     Route: 048
     Dates: start: 201309
  15. FLUOXETINE [Concomitant]
     Indication: GASTROOESOPHAGEAL REFLUX DISEASE
     Dosage: 20 MILLIGRAM DAILY;
     Route: 048
     Dates: start: 20130911
  16. TIZANIDINE [Concomitant]
     Indication: MYALGIA
     Route: 048
     Dates: start: 20130911
  17. HYDROXYZINE [Concomitant]
     Indication: PRURITUS
     Route: 048
     Dates: start: 20130924
  18. MIRALAX [Concomitant]
     Indication: CONSTIPATION
     Route: 048
     Dates: start: 2011
  19. PARACETAMOL [Concomitant]
     Indication: PREMEDICATION
     Route: 048
     Dates: start: 20130917
  20. TESTOSTERONE [Concomitant]
     Indication: BLOOD TESTOSTERONE DECREASED
  21. XANAX [Concomitant]
     Indication: ANXIETY
     Dosage: IN ONE HOUR OF SLEEP
     Route: 048
     Dates: start: 2013

REACTIONS (1)
  - Gastroenteritis [Recovered/Resolved]
